FAERS Safety Report 8819529 (Version 2)
Quarter: 2012Q4

REPORT INFORMATION
  Report Type: 
  Country: GB (occurrence: GB)
  Receive Date: 20120930
  Receipt Date: 20121010
  Transmission Date: 20130627
  Serious: Yes (Other)
  Sender: FDA-Public Use
  Company Number: GB-MYLANLABS-2012S1019417

PATIENT
  Age: 78 Year
  Sex: Female

DRUGS (5)
  1. RISPERIDONE [Suspect]
     Indication: SCHIZOPHRENIA
     Route: 048
     Dates: start: 20120606
  2. RISPERIDONE [Suspect]
     Indication: SCHIZOPHRENIA
     Dates: end: 20120518
  3. XEPLION [Suspect]
     Indication: SCHIZOPHRENIA
     Route: 030
     Dates: start: 20120615
  4. XEPLION [Suspect]
     Indication: SCHIZOPHRENIA
     Route: 030
     Dates: start: 20120518
  5. XEPLION [Suspect]
     Indication: SCHIZOPHRENIA
     Dates: start: 20120525

REACTIONS (5)
  - Inappropriate schedule of drug administration [Unknown]
  - Incorrect dose administered [Unknown]
  - Psychotic disorder [Unknown]
  - Renal impairment [Unknown]
  - Drug ineffective [Unknown]
